FAERS Safety Report 6056270-X (Version None)
Quarter: 2009Q1

REPORT INFORMATION
  Report Type: 
  Country: None (occurrence: None)
  Receive Date: 20090126
  Receipt Date: 20090126
  Transmission Date: 20090719
  Serious: Yes (Other)
  Sender: FDA-Public Use
  Company Number: None

PATIENT
  Sex: Female
  Weight: 85.2762 kg

DRUGS (1)
  1. AUGMENTIN '875' [Suspect]
     Indication: EAR INFECTION
     Dosage: 875 MG BID ORAL
     Route: 048
     Dates: start: 20090106, end: 20090107

REACTIONS (5)
  - CARDIAC DISORDER [None]
  - DYSPNOEA [None]
  - HEART RATE INCREASED [None]
  - HYPERTENSION [None]
  - PANIC REACTION [None]
